FAERS Safety Report 8322128-6 (Version None)
Quarter: 2012Q2

REPORT INFORMATION
  Report Type: 
  Country: None (occurrence: None)
  Receive Date: 20120426
  Receipt Date: 20120412
  Transmission Date: 20120825
  Serious: Yes (Death, Life-Threatening, Hospitalization, Other)
  Sender: FDA-Public Use
  Company Number: 2012MA004966

PATIENT
  Age: 65 Year
  Sex: Male

DRUGS (11)
  1. OMEPRAZOLE [Concomitant]
  2. ACETAMINOPHEN [Concomitant]
  3. HUMALOG [Concomitant]
  4. DOXYCYCLINE HYCLATE [Suspect]
     Dosage: 100 MG; BID; PO
     Route: 048
     Dates: start: 20120327, end: 20120403
  5. ATENOLOL [Concomitant]
  6. FUROSEMIDE [Concomitant]
  7. METFORMIN HCL [Concomitant]
  8. GABAPENTIN [Suspect]
     Indication: NEURALGIA
     Dosage: 900 MG; TID; PO
     Route: 048
     Dates: start: 20120322, end: 20120331
  9. CANDESARTAN CILEXETIL [Suspect]
     Indication: HYPERTENSION
     Dosage: 8 MG; BID; PO
     Route: 048
     Dates: start: 20120322, end: 20120331
  10. FELODIPINE [Suspect]
     Indication: HYPERTENSION
     Dosage: 5 MG; QD; PO
     Route: 048
     Dates: start: 20120325, end: 20120331
  11. AMLODIPINE(PREV.) [Concomitant]

REACTIONS (2)
  - INTESTINAL RESECTION [None]
  - RENAL FAILURE ACUTE [None]
